FAERS Safety Report 7397231-8 (Version None)
Quarter: 2011Q2

REPORT INFORMATION
  Report Type: 
  Country: None (occurrence: None)
  Receive Date: 20110406
  Receipt Date: 20110324
  Transmission Date: 20111010
  Serious: Yes (Death)
  Sender: FDA-Public Use
  Company Number: US-ACTELION-A-US2011-46494

PATIENT

DRUGS (3)
  1. VENTAVIS [Suspect]
     Dosage: UNK ?G, UNK
     Route: 055
     Dates: start: 20090527
  2. VENTAVIS [Suspect]
     Indication: PULMONARY ARTERIAL HYPERTENSION
     Dosage: 5 ?G, 6 X DAY
     Route: 055
     Dates: start: 20100720, end: 20110301
  3. REVATIO [Concomitant]

REACTIONS (1)
  - DEATH [None]
